FAERS Safety Report 8141872-7 (Version None)
Quarter: 2012Q1

REPORT INFORMATION
  Report Type: 
  Country: None (occurrence: None)
  Receive Date: 20120216
  Receipt Date: 20120214
  Transmission Date: 20120608
  Serious: Yes (Other)
  Sender: FDA-Public Use
  Company Number: JP-PFIZER INC-2012038964

PATIENT
  Sex: Male

DRUGS (1)
  1. HALCION [Suspect]
     Dosage: UNK
     Route: 048

REACTIONS (1)
  - GLAUCOMA [None]
